FAERS Safety Report 20849933 (Version 1)
Quarter: 2022Q2

REPORT INFORMATION
  Report Type: Spontaneous
  Country: US (occurrence: US)
  Receive Date: 20220519
  Receipt Date: 20220519
  Transmission Date: 20220720
  Serious: No
  Sender: FDA-Public Use
  Company Number: US-PFIZER INC-202101719895

PATIENT
  Age: 53 Year
  Sex: Male

DRUGS (2)
  1. SOMAVERT [Suspect]
     Active Substance: PEGVISOMANT
     Indication: Acromegaly
     Dosage: 20 MG, TWICE A WEEK
  2. SOMAVERT [Suspect]
     Active Substance: PEGVISOMANT
     Indication: Gigantism
     Dosage: 15 MG, TWICE A WEEK
     Dates: start: 20211223

REACTIONS (4)
  - Off label use [Unknown]
  - Injection site extravasation [Unknown]
  - Skin reaction [Recovered/Resolved]
  - Insulin-like growth factor abnormal [Unknown]
